FAERS Safety Report 4758679-0 (Version None)
Quarter: 2005Q3

REPORT INFORMATION
  Report Type: 
  Country: None (occurrence: None)
  Receive Date: 20050901
  Receipt Date: 20050822
  Transmission Date: 20060218
  Serious: Yes (Other)
  Sender: FDA-Public Use
  Company Number: DE-BRISTOL-MYERS SQUIBB COMPANY-13087135

PATIENT
  Age: 67 Year
  Sex: Female

DRUGS (1)
  1. VOLON-A INJ 40 MG [Suspect]
     Indication: CORNEAL EPITHELIUM DEFECT
     Route: 031
     Dates: start: 20050729, end: 20050729

REACTIONS (1)
  - ENDOPHTHALMITIS [None]
